FAERS Safety Report 6731704-3 (Version None)
Quarter: 2010Q2

REPORT INFORMATION
  Report Type: 
  Country: None (occurrence: None)
  Receive Date: 20100519
  Receipt Date: 20100510
  Transmission Date: 20101027
  Serious: Yes (Other)
  Sender: FDA-Public Use
  Company Number: JP-EISAI INC.-E3810-03789-SPO-JP

PATIENT
  Sex: Female
  Weight: 45 kg

DRUGS (18)
  1. PARIET (RABEPRAZOLE) [Suspect]
     Indication: REFLUX OESOPHAGITIS
     Route: 048
     Dates: start: 20100425, end: 20100506
  2. PARIET (RABEPRAZOLE) [Suspect]
     Route: 048
     Dates: start: 20090603, end: 20100424
  3. PARIET (RABEPRAZOLE) [Suspect]
     Route: 048
     Dates: start: 20070101, end: 20090602
  4. FERROMIA [Concomitant]
     Indication: IRON DEFICIENCY ANAEMIA
     Route: 048
     Dates: start: 20100421
  5. BETAMETHASONE VALERATE [Concomitant]
     Dosage: UNKNOWN
     Dates: end: 20100421
  6. FERROUS FUMARATE [Concomitant]
     Route: 048
  7. MOSAPRIDE CITRATE [Concomitant]
     Route: 048
     Dates: start: 20080409
  8. TAKA-DIASTASE [Concomitant]
     Route: 048
     Dates: start: 20080409
  9. SELBEX [Concomitant]
     Route: 048
     Dates: start: 20080526
  10. NON-PYRINE COLD PREPARATION [Concomitant]
     Dosage: UNKNOWN
     Route: 065
     Dates: start: 20080709
  11. TIZANIDINE HCL [Concomitant]
     Route: 048
  12. CEREKINON [Concomitant]
     Route: 048
     Dates: start: 20090126
  13. LOPEMIN [Concomitant]
     Route: 048
  14. KETOPROFEN [Concomitant]
     Dosage: UNKNOWN
  15. ACUATIM [Concomitant]
     Dosage: UNKNOWN
  16. MEIACT [Concomitant]
     Route: 048
  17. CLOFEDANOL HYDROCHLORIDE [Concomitant]
     Route: 048
     Dates: start: 20080709
  18. GANATON [Concomitant]
     Route: 048
     Dates: start: 20080526

REACTIONS (1)
  - COLITIS COLLAGENOUS [None]
